FAERS Safety Report 6296436-7 (Version None)
Quarter: 2009Q3

REPORT INFORMATION
  Report Type: 
  Country: None (occurrence: None)
  Receive Date: 20090804
  Receipt Date: 20090727
  Transmission Date: 20100115
  Serious: Yes (Hospitalization)
  Sender: FDA-Public Use
  Company Number: US-BAYER-200928235NA

PATIENT
  Age: 62 Year
  Sex: Female

DRUGS (6)
  1. SORAFENIB [Suspect]
     Indication: PANCREATIC CARCINOMA
     Dosage: TOTAL DAILY DOSE: 800 MG  UNIT DOSE: 200 MG
     Route: 048
     Dates: start: 20090715, end: 20090726
  2. ERLOTINIB [Suspect]
     Indication: PANCREATIC CARCINOMA
     Dosage: TOTAL DAILY DOSE: 150 MG
     Route: 048
     Dates: start: 20090715, end: 20090726
  3. COUMADIN [Concomitant]
     Dosage: TOTAL DAILY DOSE: 5 MG
     Route: 048
  4. EFFEXOR [Concomitant]
     Dosage: TOTAL DAILY DOSE: 75 MG
     Route: 048
  5. LORTAB [Concomitant]
     Dosage: ONE TABLET Q 4-6 HOURS RARELY TAKEN
  6. SIMVASTATIN [Concomitant]
     Dosage: TOTAL DAILY DOSE: 150 ?G
     Route: 058

REACTIONS (4)
  - ANAEMIA [None]
  - DEHYDRATION [None]
  - DIARRHOEA [None]
  - HYPOKALAEMIA [None]
